FAERS Safety Report 26120448 (Version 1)
Quarter: 2025Q4

REPORT INFORMATION
  Report Type: Spontaneous
  Country: EU (occurrence: EU)
  Receive Date: 20251204
  Receipt Date: 20251204
  Transmission Date: 20260118
  Serious: Yes (Other)
  Sender: TEVA
  Company Number: None

PATIENT
  Age: 54 Year
  Sex: Female
  Weight: 75 kg

DRUGS (1)
  1. AMOXICILLIN [Suspect]
     Active Substance: AMOXICILLIN
     Indication: Ear, nose and throat infection
     Dosage: 1 G X3/DAY
     Route: 048
     Dates: start: 20160706, end: 20160708

REACTIONS (4)
  - Type IV hypersensitivity reaction [Recovered/Resolved]
  - Eosinophilia [Recovered/Resolved]
  - Allergy test positive [Recovered/Resolved]
  - Erythema [Recovered/Resolved]

NARRATIVE: CASE EVENT DATE: 20160708
